FAERS Safety Report 6427358-6 (Version None)
Quarter: 2009Q4

REPORT INFORMATION
  Report Type: 
  Country: None (occurrence: None)
  Receive Date: 20091030
  Receipt Date: 20091022
  Transmission Date: 20100525
  Serious: Yes (Hospitalization)
  Sender: FDA-Public Use
  Company Number: 2009US003625

PATIENT
  Age: 10 Year
  Sex: Female

DRUGS (1)
  1. TACROLIMUS [Suspect]
     Indication: DERMATITIS ATOPIC
     Dosage: 0.03%, BID, TOPICAL
     Route: 061
     Dates: start: 20070821, end: 20071029

REACTIONS (1)
  - ADENOTONSILLECTOMY [None]
